FAERS Safety Report 6732498-8 (Version None)
Quarter: 2010Q2

REPORT INFORMATION
  Report Type: 
  Country: None (occurrence: None)
  Receive Date: 20100519
  Receipt Date: 20100511
  Transmission Date: 20101027
  Serious: Yes (Other)
  Sender: FDA-Public Use
  Company Number: DE-ELI_LILLY_AND_COMPANY-DE201005002774

PATIENT
  Age: 61 Year
  Sex: Male

DRUGS (5)
  1. BYETTA [Suspect]
     Route: 058
     Dates: start: 20070101
  2. OLMETEC PLUS [Concomitant]
  3. SIOFOR [Concomitant]
  4. GLIMEPIRIDE [Concomitant]
  5. SIMVADURA [Concomitant]

REACTIONS (1)
  - THYMOMA [None]
